FAERS Safety Report 25453870 (Version 1)
Quarter: 2025Q2

REPORT INFORMATION
  Report Type: Spontaneous
  Country: CN (occurrence: CN)
  Receive Date: 20250619
  Receipt Date: 20250619
  Transmission Date: 20250717
  Serious: Yes (Hospitalization)
  Sender: ABBVIE
  Company Number: CN-ABBVIE-6328106

PATIENT
  Age: 43 Year
  Sex: Male
  Weight: 69 kg

DRUGS (4)
  1. VENETOCLAX [Suspect]
     Active Substance: VENETOCLAX
     Indication: Neoplasm malignant
     Dosage: 400 MILLIGRAM D1-7
     Route: 048
     Dates: start: 20250523, end: 20250529
  2. DOXORUBICIN HYDROCHLORIDE [Suspect]
     Active Substance: DOXORUBICIN HYDROCHLORIDE
     Indication: Neoplasm malignant
     Dosage: 90 MILLIGRAM D4
     Route: 041
     Dates: start: 20250526, end: 20250526
  3. CYCLOPHOSPHAMIDE [Suspect]
     Active Substance: CYCLOPHOSPHAMIDE
     Indication: Neoplasm malignant
     Dosage: 0.5G Q12H D1-3
     Route: 041
     Dates: start: 20250523, end: 20250525
  4. VINCRISTINE SULFATE [Suspect]
     Active Substance: VINCRISTINE SULFATE
     Indication: Neoplasm malignant
     Dosage: 2 MILLIGRAM D4, 11
     Route: 041
     Dates: start: 20250526, end: 20250526

REACTIONS (3)
  - Myelosuppression [Unknown]
  - Lymphadenopathy [Unknown]
  - Breath sounds abnormal [Unknown]

NARRATIVE: CASE EVENT DATE: 20250602
